FAERS Safety Report 8816787 (Version 1)
Quarter: 2012Q4

REPORT INFORMATION
  Report Type: Spontaneous
  Country: FR (occurrence: None)
  Receive Date: 20121001
  Receipt Date: 20121001
  Transmission Date: 20130627
  Serious: Yes (Hospitalization)
  Sender: FDA-Public Use
  Company Number: DSA_59747_2012

PATIENT
  Age: 80 Year
  Sex: Male

DRUGS (11)
  1. RENITEC [Suspect]
     Indication: PRODUCT USED FOR UNKNOWN INDICATION
     Route: 048
     Dates: end: 20120830
  2. ROVAMYCIN [Suspect]
     Indication: TOOTH ABSCESS
     Route: 048
     Dates: start: 20120806, end: 20120812
  3. ROVAMYCIN [Suspect]
     Indication: PULMONARY SEPSIS
     Route: 048
     Dates: start: 20120806, end: 20120812
  4. ROVAMYCIN [Suspect]
     Indication: TOOTH ABSCESS
     Dates: start: 20120828, end: 20120828
  5. ROVAMYCIN [Suspect]
     Indication: PULMONARY SEPSIS
     Dates: start: 20120828, end: 20120828
  6. ROCEPHIN [Suspect]
     Indication: PULMONARY SEPSIS
     Route: 048
     Dates: start: 20120828, end: 20120830
  7. AMLODIN [Suspect]
     Indication: PRODUCT USED FOR UNKNOWN INDICATION
     Dates: end: 20120827
  8. PARIET [Suspect]
     Indication: PRODUCT USED FOR UNKNOWN INDICATION
     Route: 048
  9. KARDEGIC [Suspect]
     Indication: PRODUCT USED FOR UNKNOWN INDICATION
     Route: 048
     Dates: end: 20120830
  10. FLAGYL [Concomitant]
  11. SPAGULAX [Concomitant]

REACTIONS (7)
  - Pyrexia [None]
  - Confusional state [None]
  - Hypotension [None]
  - Pulmonary sepsis [None]
  - Thrombocytopenia [None]
  - Haemoglobin decreased [None]
  - Creatinine renal clearance decreased [None]
